FAERS Safety Report 6171558-X (Version None)
Quarter: 2009Q2

REPORT INFORMATION
  Report Type: 
  Country: None (occurrence: None)
  Receive Date: 20090428
  Receipt Date: 20090428
  Transmission Date: 20091009
  Serious: Yes (Hospitalization)
  Sender: FDA-Public Use
  Company Number: None

PATIENT
  Age: 72 Year
  Sex: Male
  Weight: 88 kg

DRUGS (11)
  1. PHENYTOIN [Suspect]
     Indication: CONVULSION
     Dosage: 250 MG DAILY PO, PRIOR TO ADMIT
     Route: 048
  2. OMEPRAZOLE [Concomitant]
  3. PHENOBARBITAL [Concomitant]
  4. ALBUTEROL [Concomitant]
  5. DEPO-TESTOSTERONE [Concomitant]
  6. ASPIRIN [Concomitant]
  7. LEVOTHYROXINE SODIUM [Concomitant]
  8. HYDROCORTISONE [Concomitant]
  9. TOLTERODINE LA [Concomitant]
  10. METOCLOPRAMIDE [Concomitant]
  11. LATANOPROST [Concomitant]

REACTIONS (4)
  - CONVULSION [None]
  - DRUG TOXICITY [None]
  - FALL [None]
  - LACERATION [None]
